FAERS Safety Report 6596780-X (Version None)
Quarter: 2010Q1

REPORT INFORMATION
  Report Type: 
  Country: None (occurrence: None)
  Receive Date: 20100222
  Receipt Date: 20100222
  Transmission Date: 20100710
  Serious: Yes (Death)
  Sender: FDA-Public Use
  Company Number: None

PATIENT
  Sex: Male
  Weight: 99.7913 kg

DRUGS (1)
  1. FLUCONAZOLE [Suspect]
     Indication: ONYCHOMYCOSIS
     Dosage: 1 TABLET WEEKLY
     Dates: start: 20070813

REACTIONS (3)
  - ABNORMAL BEHAVIOUR [None]
  - ARRHYTHMIA [None]
  - DYSSTASIA [None]
